FAERS Safety Report 5381000-4 (Version None)
Quarter: 2007Q3

REPORT INFORMATION
  Report Type: 
  Country: None (occurrence: None)
  Receive Date: 20070702
  Receipt Date: 20060810
  Transmission Date: 20080115
  Serious: Yes (Other)
  Sender: FDA-Public Use
  Company Number: PROG00206002627

PATIENT
  Sex: Female

DRUGS (2)
  1. PROMETRIUM [Suspect]
     Indication: ILL-DEFINED DISORDER
     Dosage: 100 MILLIGRAM(S) QD ORAL DAILY DOSE: 100 MILLIGRAM(S)
     Route: 048
  2. PREMARIN [Suspect]
     Indication: ILL-DEFINED DISORDER
     Dosage: 0.45 MILLIGRAM(S) QD ORAL DAILY DOSE: .45 MILLIGRAM(S)
     Route: 048

REACTIONS (1)
  - ENDOMETRIAL CANCER [None]
